FAERS Safety Report 22519243 (Version 1)
Quarter: 2023Q2

REPORT INFORMATION
  Report Type: Spontaneous
  Country: US (occurrence: None)
  Receive Date: 20230602
  Receipt Date: 20230602
  Transmission Date: 20230721
  Serious: No
  Sender: FDA-Public Use
  Company Number: None

PATIENT
  Age: 76 Year
  Sex: Female

DRUGS (15)
  1. AMBRISENTAN [Suspect]
     Active Substance: AMBRISENTAN
     Indication: Pulmonary hypertension
     Dosage: FREQUENCY : DAILY;?
     Route: 048
  2. CARVEDILOL [Concomitant]
     Active Substance: CARVEDILOL
  3. SILDENAFIL CITRATE [Concomitant]
     Active Substance: SILDENAFIL CITRATE
  4. LEVOTHYROXINE SODIUM [Concomitant]
     Active Substance: LEVOTHYROXINE SODIUM
  5. PRAVASTATIN SODIUM [Concomitant]
     Active Substance: PRAVASTATIN SODIUM
  6. OMEPRAZOLE [Concomitant]
     Active Substance: OMEPRAZOLE
  7. HYDROXYCHLOROQUINE SULFATE [Concomitant]
     Active Substance: HYDROXYCHLOROQUINE SULFATE
  8. AMBRISENTAN [Concomitant]
     Active Substance: AMBRISENTAN
  9. FUROSEMIDE [Concomitant]
     Active Substance: FUROSEMIDE
  10. NORTRIPTYLINE HYDROCHLORI [Concomitant]
  11. NORTRIPTYLINE HYDROCHLORI [Concomitant]
  12. METHOTREXATE [Concomitant]
     Active Substance: METHOTREXATE
  13. FOLIC ACID [Concomitant]
     Active Substance: FOLIC ACID
  14. ASPIRIN [Concomitant]
     Active Substance: ASPIRIN
  15. MELOXICAM [Concomitant]
     Active Substance: MELOXICAM

REACTIONS (1)
  - Arthritis [None]

NARRATIVE: CASE EVENT DATE: 20230601
